FAERS Safety Report 26193774 (Version 1)
Quarter: 2025Q4

REPORT INFORMATION
  Report Type: Spontaneous
  Country: EU (occurrence: EU)
  Receive Date: 20251224
  Receipt Date: 20251224
  Transmission Date: 20260117
  Serious: Yes (Disabling, Other)
  Sender: ORGANON
  Company Number: EU-JNJFOC-20251209383

PATIENT
  Age: 32 Year
  Sex: Male

DRUGS (47)
  1. MIRTAZAPINE [Suspect]
     Active Substance: MIRTAZAPINE
     Indication: Bipolar I disorder
     Dosage: UNK
     Route: 065
  2. MIRTAZAPINE [Suspect]
     Active Substance: MIRTAZAPINE
     Indication: Autism spectrum disorder
  3. MIRTAZAPINE [Suspect]
     Active Substance: MIRTAZAPINE
     Indication: Substance use disorder
  4. MIRTAZAPINE [Suspect]
     Active Substance: MIRTAZAPINE
     Indication: Mania
  5. HALOPERIDOL [Suspect]
     Active Substance: HALOPERIDOL
     Indication: Bipolar I disorder
     Dosage: UNK
     Route: 065
  6. HALOPERIDOL [Suspect]
     Active Substance: HALOPERIDOL
     Indication: Autism spectrum disorder
  7. HALOPERIDOL [Suspect]
     Active Substance: HALOPERIDOL
     Indication: Substance use disorder
  8. HALOPERIDOL [Suspect]
     Active Substance: HALOPERIDOL
     Indication: Mania
  9. RISPERDAL [Suspect]
     Active Substance: RISPERIDONE
     Indication: Bipolar I disorder
     Dosage: UNK
     Route: 065
  10. RISPERDAL [Suspect]
     Active Substance: RISPERIDONE
     Indication: Autism spectrum disorder
  11. RISPERDAL [Suspect]
     Active Substance: RISPERIDONE
     Indication: Substance use disorder
  12. RISPERDAL [Suspect]
     Active Substance: RISPERIDONE
     Indication: Mania
  13. OLANZAPINE [Suspect]
     Active Substance: OLANZAPINE
     Indication: Bipolar I disorder
     Dosage: UNK
     Route: 065
  14. OLANZAPINE [Suspect]
     Active Substance: OLANZAPINE
     Indication: Autism spectrum disorder
  15. OLANZAPINE [Suspect]
     Active Substance: OLANZAPINE
     Indication: Substance use disorder
  16. OLANZAPINE [Suspect]
     Active Substance: OLANZAPINE
     Indication: Mania
  17. MIDOMAFETAMINE [Suspect]
     Active Substance: MIDOMAFETAMINE
     Indication: Mania
     Dosage: UNK
     Route: 065
  18. VALPROIC ACID [Suspect]
     Active Substance: VALPROIC ACID
     Indication: Bipolar disorder
     Dosage: UNK
     Route: 065
  19. VALPROIC ACID [Suspect]
     Active Substance: VALPROIC ACID
     Indication: Autism spectrum disorder
  20. VALPROIC ACID [Suspect]
     Active Substance: VALPROIC ACID
     Indication: Substance use disorder
  21. VALPROIC ACID [Suspect]
     Active Substance: VALPROIC ACID
     Indication: Mania
  22. VENLAFAXINE [Suspect]
     Active Substance: VENLAFAXINE HYDROCHLORIDE
     Indication: Bipolar disorder
     Dosage: UNK
     Route: 065
  23. VENLAFAXINE [Suspect]
     Active Substance: VENLAFAXINE HYDROCHLORIDE
     Indication: Autism spectrum disorder
  24. VENLAFAXINE [Suspect]
     Active Substance: VENLAFAXINE HYDROCHLORIDE
     Indication: Substance use disorder
  25. VENLAFAXINE [Suspect]
     Active Substance: VENLAFAXINE HYDROCHLORIDE
     Indication: Mania
  26. PIPAMPERONE [Suspect]
     Active Substance: PIPAMPERONE
     Indication: Bipolar disorder
     Dosage: UNK
     Route: 065
  27. PIPAMPERONE [Suspect]
     Active Substance: PIPAMPERONE
     Indication: Autism spectrum disorder
  28. PIPAMPERONE [Suspect]
     Active Substance: PIPAMPERONE
     Indication: Substance use disorder
  29. PIPAMPERONE [Suspect]
     Active Substance: PIPAMPERONE
     Indication: Mania
  30. QUETIAPINE [Suspect]
     Active Substance: QUETIAPINE
     Indication: Bipolar I disorder
     Dosage: UNK
     Route: 065
  31. QUETIAPINE [Suspect]
     Active Substance: QUETIAPINE
     Indication: Autism spectrum disorder
  32. QUETIAPINE [Suspect]
     Active Substance: QUETIAPINE
     Indication: Substance use disorder
  33. QUETIAPINE [Suspect]
     Active Substance: QUETIAPINE
     Indication: Mania
  34. LITHIUM [Suspect]
     Active Substance: LITHIUM
     Indication: Bipolar I disorder
     Dosage: UNK
     Route: 065
  35. LITHIUM [Suspect]
     Active Substance: LITHIUM
     Indication: Autism spectrum disorder
  36. LITHIUM [Suspect]
     Active Substance: LITHIUM
     Indication: Substance use disorder
  37. LITHIUM [Suspect]
     Active Substance: LITHIUM
     Indication: Mania
  38. LAMOTRIGINE [Suspect]
     Active Substance: LAMOTRIGINE
     Indication: Bipolar I disorder
     Dosage: UNK
     Route: 065
  39. LAMOTRIGINE [Suspect]
     Active Substance: LAMOTRIGINE
     Indication: Autism spectrum disorder
  40. LAMOTRIGINE [Suspect]
     Active Substance: LAMOTRIGINE
     Indication: Substance use disorder
  41. LAMOTRIGINE [Suspect]
     Active Substance: LAMOTRIGINE
     Indication: Mania
  42. ARIPIPRAZOLE [Suspect]
     Active Substance: ARIPIPRAZOLE
     Indication: Mania
     Dosage: UNK
  43. CLONAZEPAM [Suspect]
     Active Substance: CLONAZEPAM
     Indication: Product used for unknown indication
     Dosage: UNK
  44. PENFLURIDOL [Suspect]
     Active Substance: PENFLURIDOL
     Indication: Bipolar I disorder
     Dosage: UNK
     Route: 065
  45. PENFLURIDOL [Suspect]
     Active Substance: PENFLURIDOL
     Indication: Autism spectrum disorder
  46. PENFLURIDOL [Suspect]
     Active Substance: PENFLURIDOL
     Indication: Substance use disorder
  47. PENFLURIDOL [Suspect]
     Active Substance: PENFLURIDOL
     Indication: Mania

REACTIONS (10)
  - Paroxysmal perceptual alteration [Recovered/Resolved]
  - Vision blurred [Recovered/Resolved]
  - Oscillopsia [Recovered/Resolved]
  - Photopsia [Recovered/Resolved]
  - Visual impairment [Recovered/Resolved]
  - Anxiety [Recovered/Resolved]
  - Suicidal ideation [Unknown]
  - Hyperventilation [Unknown]
  - Product use in unapproved indication [Unknown]
  - Off label use [Not Recovered/Not Resolved]
